FAERS Safety Report 8036175-5 (Version None)
Quarter: 2012Q1

REPORT INFORMATION
  Report Type: 
  Country: None (occurrence: None)
  Receive Date: 20120106
  Receipt Date: 20111229
  Transmission Date: 20120608
  Serious: Yes (Other)
  Sender: FDA-Public Use
  Company Number: 2012MA000059

PATIENT
  Age: 44 Year
  Sex: Female

DRUGS (1)
  1. HYDROCORTISONE 2.5% CREAM [Suspect]

REACTIONS (1)
  - ADRENOCORTICAL INSUFFICIENCY ACUTE [None]
